FAERS Safety Report 23225571 (Version 1)
Quarter: 2023Q4

REPORT INFORMATION
  Report Type: Spontaneous
  Country: DE (occurrence: DE)
  Receive Date: 20231124
  Receipt Date: 20231124
  Transmission Date: 20240110
  Serious: Yes (Other)
  Sender: FDA-Public Use
  Company Number: DE-SANOFI-01595038

PATIENT

DRUGS (2)
  1. HYDROXYCHLOROQUINE [Suspect]
     Active Substance: HYDROXYCHLOROQUINE
     Indication: Sjogren^s syndrome
     Dosage: UNK (QUENSYL,FILM-COATED TABLET)
  2. IMURAN [Concomitant]
     Active Substance: AZATHIOPRINE
     Dosage: UNK
     Dates: start: 2023

REACTIONS (3)
  - Deep vein thrombosis [Unknown]
  - Off label use [Unknown]
  - Product use in unapproved indication [Unknown]
